FAERS Safety Report 10651801 (Version 3)
Quarter: 2014Q4

REPORT INFORMATION
  Report Type: Report from Study
  Country: US (occurrence: US)
  Receive Date: 20141215
  Receipt Date: 20141231
  Transmission Date: 20150529
  Serious: Yes (Hospitalization)
  Sender: FDA-Public Use
  Company Number: US-009507513-1402USA000342

PATIENT
  Age: 58 Year
  Sex: Male
  Weight: 113.29 kg

DRUGS (7)
  1. LORAZEPAM. [Concomitant]
     Active Substance: LORAZEPAM
     Indication: INSOMNIA
     Dosage: TOTAL DAILY DOSE: 1 MG, PRN
     Route: 048
     Dates: start: 200801
  2. ACYCLOVIR. [Concomitant]
     Active Substance: ACYCLOVIR
     Indication: PROPHYLAXIS
     Dosage: TOTAL DAILY DOSE: 1200 MG, TID
     Route: 048
     Dates: start: 20131226
  3. CIPROFLOXACIN. [Concomitant]
     Active Substance: CIPROFLOXACIN
     Indication: INFECTION PROPHYLAXIS
     Dosage: TOTAL DAILY DOSE: 1000 MG, BID
     Route: 048
     Dates: start: 20131223
  4. OXYCODONE [Concomitant]
     Active Substance: OXYCODONE
     Indication: PAIN
     Dosage: TOTAL DAILY DOSE: 60 MG, TID
     Route: 048
     Dates: start: 201312
  5. PEMBROLIZUMAB. [Suspect]
     Active Substance: PEMBROLIZUMAB
     Indication: NON-HODGKIN^S LYMPHOMA
     Dosage: 10 MG/KG, Q2W
     Route: 042
     Dates: start: 20140127, end: 20140127
  6. PRADAXA [Concomitant]
     Active Substance: DABIGATRAN ETEXILATE MESYLATE
     Indication: ATRIAL FIBRILLATION
     Dosage: TOTAL DAILY DOSE: 300 MG, BID
     Route: 048
     Dates: start: 201207
  7. METOPROLOL SUCCINATE. [Concomitant]
     Active Substance: METOPROLOL SUCCINATE
     Indication: ATRIAL FIBRILLATION
     Dosage: TOTAL DAILY DOSE: 100 MG, QD
     Route: 048
     Dates: start: 200701

REACTIONS (3)
  - Pleural effusion [Not Recovered/Not Resolved]
  - Arthralgia [Not Recovered/Not Resolved]
  - Anaemia [Unknown]

NARRATIVE: CASE EVENT DATE: 20140127
